FAERS Safety Report 8173120-6 (Version None)
Quarter: 2012Q1

REPORT INFORMATION
  Report Type: 
  Country: None (occurrence: None)
  Receive Date: 20120229
  Receipt Date: 20110209
  Transmission Date: 20120608
  Serious: No
  Sender: FDA-Public Use
  Company Number: US-GLAXOSMITHKLINE-A0887449A

PATIENT
  Sex: Female

DRUGS (2)
  1. GSK AUTOINJECTOR [Suspect]
  2. SUMATRIPTAN [Suspect]
     Route: 058

REACTIONS (3)
  - PRODUCT QUALITY ISSUE [None]
  - NEEDLE ISSUE [None]
  - DEVICE MALFUNCTION [None]
